FAERS Safety Report 5281525-6 (Version None)
Quarter: 2007Q1

REPORT INFORMATION
  Report Type: 
  Country: None (occurrence: None)
  Receive Date: 20070330
  Receipt Date: 20070319
  Transmission Date: 20070707
  Serious: Yes (Hospitalization, Other)
  Sender: FDA-Public Use
  Company Number: RO-NOVOPROD-260025

PATIENT
  Age: 19 Year
  Sex: Male
  Weight: 75 kg

DRUGS (5)
  1. NOVOSEVEN [Suspect]
     Indication: HAEMORRHAGE
     Dosage: 6 VIALS OF 1.2 MG
     Route: 042
  2. RED BLOOD CELLS [Concomitant]
     Dosage: 13 U, UNK
  3. FRESH FROZEN PLASMA [Concomitant]
     Dosage: 4 U, UNK
  4. PLATELETS [Concomitant]
     Dosage: 6 U, UNK
  5. CRYOPRECIPITATES [Concomitant]
     Dosage: 4 U, UNK

REACTIONS (3)
  - DEEP VEIN THROMBOSIS [None]
  - MULTI-ORGAN FAILURE [None]
  - SEPSIS [None]
